FAERS Safety Report 7469108-0 (Version None)
Quarter: 2011Q2

REPORT INFORMATION
  Report Type: 
  Country: None (occurrence: None)
  Receive Date: 20110510
  Receipt Date: 20110427
  Transmission Date: 20111010
  Serious: Yes (Hospitalization)
  Sender: FDA-Public Use
  Company Number: US-ELI_LILLY_AND_COMPANY-US201104007733

PATIENT
  Age: 13 Year
  Sex: Male

DRUGS (12)
  1. ZYPREXA [Suspect]
     Dosage: 10 MG, QD
  2. CITALOPRAM HYDROBROMIDE [Concomitant]
  3. QVAR 40 [Concomitant]
  4. ALBUTEROL [Concomitant]
     Dosage: UNK, PRN
  5. ZYPREXA ZYDIS [Suspect]
     Dosage: 10 MG, PRN
  6. DIGOXIN [Concomitant]
  7. SINGULAIR [Concomitant]
  8. CLARITIN [Concomitant]
  9. ABILIFY [Concomitant]
  10. ASPIRIN [Concomitant]
  11. ZYPREXA [Suspect]
     Indication: PSYCHOTIC DISORDER
     Dosage: 10 MG, QD
     Dates: start: 20100601
  12. ZYPREXA ZYDIS [Suspect]
     Indication: PSYCHOTIC DISORDER
     Dosage: 10 MG, PRN
     Dates: start: 20100601

REACTIONS (9)
  - OFF LABEL USE [None]
  - PANIC REACTION [None]
  - AGGRESSION [None]
  - CEREBROVASCULAR ACCIDENT [None]
  - PSYCHIATRIC SYMPTOM [None]
  - EYE PAIN [None]
  - PSYCHOTIC DISORDER [None]
  - OXYGEN SATURATION DECREASED [None]
  - DYSPNOEA [None]
